FAERS Safety Report 7291404-0 (Version None)
Quarter: 2011Q1

REPORT INFORMATION
  Report Type: 
  Country: None (occurrence: None)
  Receive Date: 20110214
  Receipt Date: 20110204
  Transmission Date: 20110831
  Serious: Yes (Hospitalization)
  Sender: FDA-Public Use
  Company Number: B0698999A

PATIENT
  Age: 78 Year
  Sex: Female

DRUGS (6)
  1. PROPAFENONE HCL [Suspect]
     Indication: ARRHYTHMIA SUPRAVENTRICULAR
     Dosage: 150MG THREE TIMES PER DAY
     Route: 048
  2. RAMIPRIL [Concomitant]
     Indication: HYPERTENSION
     Route: 065
  3. FUROSEMIDE [Concomitant]
     Indication: HYPERTENSION
     Route: 065
  4. AEROSOL [Concomitant]
  5. VERAPAMIL [Concomitant]
     Indication: ARRHYTHMIA SUPRAVENTRICULAR
  6. IVABRADINE HYDROCHLORIDE [Concomitant]
     Indication: ARRHYTHMIA SUPRAVENTRICULAR

REACTIONS (4)
  - BRONCHOSTENOSIS [None]
  - DYSPNOEA [None]
  - RALES [None]
  - WHEEZING [None]
